FAERS Safety Report 20774376 (Version 1)
Quarter: 2022Q2

REPORT INFORMATION
  Report Type: Spontaneous
  Country: CA (occurrence: CA)
  Receive Date: 20220502
  Receipt Date: 20220502
  Transmission Date: 20220721
  Serious: Yes (Hospitalization, Other)
  Sender: FDA-Public Use
  Company Number: CA-TEVA-2022-CA-2031500

PATIENT
  Age: 55 Year
  Sex: Female
  Weight: 102 kg

DRUGS (25)
  1. FENTANYL [Suspect]
     Active Substance: FENTANYL
     Indication: Rheumatoid arthritis
     Route: 062
  2. FENTANYL [Suspect]
     Active Substance: FENTANYL
     Indication: Arthralgia
     Route: 065
  3. DILAUDID [Suspect]
     Active Substance: HYDROMORPHONE HYDROCHLORIDE
     Indication: Rheumatoid arthritis
     Dosage: 12 MILLIGRAM DAILY;
     Route: 048
  4. DILAUDID [Suspect]
     Active Substance: HYDROMORPHONE HYDROCHLORIDE
     Indication: Arthralgia
  5. ABILIFY [Concomitant]
     Active Substance: ARIPIPRAZOLE
  6. AMITRIPTYLINE [Concomitant]
     Active Substance: AMITRIPTYLINE
  7. ATIVAN [Concomitant]
     Active Substance: LORAZEPAM
  8. CALCIUM\VITAMIN D [Concomitant]
     Active Substance: CALCIUM\VITAMIN D
  9. CYCLOSPORINE [Concomitant]
     Active Substance: CYCLOSPORINE
  10. ELIQUIS [Concomitant]
     Active Substance: APIXABAN
  11. ESOMEPRAZOLE [Concomitant]
     Active Substance: ESOMEPRAZOLE
     Route: 065
  12. FOLIC ACID [Concomitant]
     Active Substance: FOLIC ACID
  13. LASIX [Concomitant]
     Active Substance: FUROSEMIDE
  14. LYRICA [Concomitant]
     Active Substance: PREGABALIN
  15. METFORMIN [Concomitant]
     Active Substance: METFORMIN HYDROCHLORIDE
  16. POTASSIUM CHLORIDE [Concomitant]
     Active Substance: POTASSIUM CHLORIDE
  17. PREDNISONE [Concomitant]
     Active Substance: PREDNISONE
  18. ROSUVASTATIN [Concomitant]
     Active Substance: ROSUVASTATIN
     Route: 058
  19. SERTRALINE [Concomitant]
     Active Substance: SERTRALINE HYDROCHLORIDE
  20. SPIRIVA [Concomitant]
     Active Substance: TIOTROPIUM BROMIDE MONOHYDRATE
     Route: 065
  21. SYMBICORT [Concomitant]
     Active Substance: BUDESONIDE\FORMOTEROL FUMARATE DIHYDRATE
  22. SYNTHROID [Concomitant]
     Active Substance: LEVOTHYROXINE SODIUM
  23. TALTZ [Concomitant]
     Active Substance: IXEKIZUMAB
  24. TRAZODONE [Concomitant]
     Active Substance: TRAZODONE HYDROCHLORIDE
  25. VENTOLIN [Concomitant]
     Active Substance: ALBUTEROL SULFATE

REACTIONS (4)
  - Accidental overdose [Recovered/Resolved]
  - Altered state of consciousness [Recovered/Resolved]
  - Respiratory failure [Recovered/Resolved]
  - Stupor [Recovered/Resolved]
